FAERS Safety Report 7393066-0 (Version None)
Quarter: 2011Q2

REPORT INFORMATION
  Report Type: 
  Country: None (occurrence: None)
  Receive Date: 20110404
  Receipt Date: 20110328
  Transmission Date: 20111010
  Serious: Yes (Hospitalization)
  Sender: FDA-Public Use
  Company Number: JP-AMGEN-JPNCT2011017583

PATIENT
  Age: 73 Year
  Sex: Male
  Weight: 58 kg

DRUGS (14)
  1. CORTICOSTEROIDS [Concomitant]
     Indication: PROPHYLAXIS
     Dosage: UNK
     Route: 065
  2. PYDOXAL [Concomitant]
     Dosage: UNK
     Route: 048
  3. PANITUMUMAB [Suspect]
     Dosage: 4.8 MG/KG, Q2WK
     Route: 041
     Dates: start: 20101202
  4. OXALIPLATIN [Suspect]
     Indication: COLORECTAL CANCER
     Route: 041
     Dates: start: 20101014, end: 20101030
  5. FLUOROURACIL [Concomitant]
     Route: 040
     Dates: start: 20101202
  6. CALCIUM LEVOFOLINATE [Concomitant]
     Indication: COLORECTAL CANCER
     Route: 041
     Dates: start: 20101014, end: 20101030
  7. RAMELTEON [Concomitant]
     Dosage: UNK
     Route: 042
  8. CALONAL [Concomitant]
     Dosage: UNK
     Route: 048
  9. FLUOROURACIL [Concomitant]
     Route: 041
     Dates: start: 20101202
  10. PANITUMUMAB [Suspect]
     Indication: COLORECTAL CANCER
     Dosage: 4.8 MG/KG, Q2WK
     Route: 041
     Dates: start: 20101014, end: 20101028
  11. FLUOROURACIL [Concomitant]
     Indication: COLORECTAL CANCER
     Route: 040
     Dates: start: 20101014, end: 20101030
  12. HIRUDOID LOTION [Concomitant]
     Dosage: UNK
     Route: 062
  13. FLUOROURACIL [Concomitant]
     Route: 041
     Dates: start: 20101014, end: 20101030
  14. CALCIUM LEVOFOLINATE [Concomitant]
     Route: 041
     Dates: start: 20101202

REACTIONS (3)
  - GLOSSODYNIA [None]
  - PARONYCHIA [None]
  - DERMATITIS ACNEIFORM [None]
